FAERS Safety Report 11283013 (Version 1)
Quarter: 2015Q3

REPORT INFORMATION
  Report Type: Spontaneous
  Country: CA (occurrence: None)
  Receive Date: 20150716
  Receipt Date: 20150716
  Transmission Date: 20151125
  Serious: Yes (Other)
  Sender: FDA-Public Use
  Company Number: CA-2015VAL000455

PATIENT
  Age: 31 Year
  Sex: Female

DRUGS (3)
  1. BROMOCRIPTINE MESYLATE (BROMOCRIPTINE MESYLATE) UNKNOWN [Suspect]
     Active Substance: BROMOCRIPTINE MESYLATE
     Indication: LACTATION INHIBITION THERAPY
  2. PROTAMINE [Concomitant]
     Active Substance: PROTAMINE
  3. INSULIN LISPRO [Concomitant]
     Active Substance: INSULIN LISPRO

REACTIONS (5)
  - Hypopituitarism [None]
  - Vasospasm [None]
  - Angiopathy [None]
  - Cerebrovascular accident [None]
  - Amenorrhoea [None]
